FAERS Safety Report 15660758 (Version 2)
Quarter: 2019Q1

REPORT INFORMATION
  Report Type: Report from Study
  Country: US (occurrence: US)
  Receive Date: 20181127
  Receipt Date: 20190115
  Transmission Date: 20190417
  Serious: Yes (Hospitalization)
  Sender: FDA-Public Use
  Company Number: PHEH2018US049066

PATIENT
  Age: 47 Year
  Sex: Female
  Weight: 215 kg

DRUGS (2)
  1. COSENTYX [Suspect]
     Active Substance: SECUKINUMAB
     Indication: ANKYLOSING SPONDYLITIS
     Dosage: 150 MG, (INJECT 150 MG SUBCUTANEOUSLY AT WEEK 4, THEN 150 MG EVERY 4 WEEKS THEREAFTER)
     Route: 058
     Dates: start: 20180514, end: 20180726
  2. COSENTYX [Suspect]
     Active Substance: SECUKINUMAB
     Indication: PSORIATIC ARTHROPATHY

REACTIONS (3)
  - Infection [Unknown]
  - Limb injury [Recovered/Resolved]
  - Haematoma [Recovered/Resolved]

NARRATIVE: CASE EVENT DATE: 20180721
